FAERS Safety Report 7169388-5 (Version None)
Quarter: 2010Q4

REPORT INFORMATION
  Report Type: 
  Country: None (occurrence: None)
  Receive Date: 20101216
  Receipt Date: 20100111
  Transmission Date: 20110411
  Serious: No
  Sender: FDA-Public Use
  Company Number: US-AMGEN-KDL385179

PATIENT

DRUGS (16)
  1. ENBREL [Suspect]
     Indication: PRODUCT USED FOR UNKNOWN INDICATION
     Dosage: 50 MG, QWK
     Route: 058
     Dates: start: 20070101
  2. DEXTROPROPOXYPHENE NAPSILATE W/ ACETAMINOPHEN [Concomitant]
     Dosage: UNK UNK, UNK
  3. RALOXIFEN HCL [Concomitant]
     Dosage: 60 MG, UNK
  4. CYCLOBENZAPRINE HCL [Concomitant]
     Dosage: 10 MG, UNK
  5. LEFLUNOMIDE [Concomitant]
     Dosage: 20 MG, UNK
  6. METOPROLOL [Concomitant]
     Dosage: 50 MG, UNK
  7. FOLIC ACID [Concomitant]
     Dosage: 1 MG, UNK
  8. UNSPECIFIED MEDICATION [Concomitant]
     Dosage: 35 MG, UNK
  9. ESOMEPRAZOLE MAGNESIUM [Concomitant]
     Dosage: 40 MG, UNK
  10. MECLIZINE [Concomitant]
     Dosage: 25 MG, UNK
  11. IBUPROFEN [Concomitant]
     Dosage: 200 MG, UNK
  12. UNSPECIFIED MEDICATION [Concomitant]
     Dosage: 500 MG, UNK
  13. CALCIUM [Concomitant]
  14. ASPIRIN [Concomitant]
     Dosage: 81 MG, UNK
  15. LOVAZA [Concomitant]
     Dosage: 1000 MG, UNK
  16. UNSPECIFIED MEDICATION [Concomitant]
     Dosage: .4 MG, UNK

REACTIONS (7)
  - BODY FAT DISORDER [None]
  - BRONCHITIS [None]
  - ERYTHEMA [None]
  - LACRIMATION INCREASED [None]
  - PAIN [None]
  - RESPIRATORY TRACT CONGESTION [None]
  - RHINORRHOEA [None]
